FAERS Safety Report 18610252 (Version 1)
Quarter: 2020Q4

REPORT INFORMATION
  Report Type: Spontaneous
  Country: US (occurrence: US)
  Receive Date: 20201214
  Receipt Date: 20201214
  Transmission Date: 20210114
  Serious: Yes (Other)
  Sender: FDA-Public Use
  Company Number: US-GLAXOSMITHKLINE-US2020245313

PATIENT
  Age: 76 Year
  Sex: Female

DRUGS (1)
  1. CITRUCEL [Suspect]
     Active Substance: METHYLCELLULOSE (4000 MPA.S)

REACTIONS (4)
  - Medication error [Recovered/Resolved]
  - Diabetes mellitus [Unknown]
  - Coeliac disease [Unknown]
  - Therapeutic response unexpected [Unknown]
